FAERS Safety Report 5113640-1 (Version None)
Quarter: 2006Q3

REPORT INFORMATION
  Report Type: 
  Country: None (occurrence: None)
  Receive Date: 20060925
  Receipt Date: 20060912
  Transmission Date: 20061208
  Serious: Yes (Other)
  Sender: FDA-Public Use
  Company Number: PHBS2006JP14235

PATIENT

DRUGS (1)
  1. ZOMETA [Suspect]
     Route: 042

REACTIONS (3)
  - COAGULATION FACTOR VIII LEVEL INCREASED [None]
  - COAGULOPATHY [None]
  - VON WILLEBRAND'S FACTOR ANTIGEN INCREASED [None]
